FAERS Safety Report 7627178-0 (Version None)
Quarter: 2011Q3

REPORT INFORMATION
  Report Type: 
  Country: None (occurrence: None)
  Receive Date: 20110721
  Receipt Date: 20110513
  Transmission Date: 20111222
  Serious: No
  Sender: FDA-Public Use
  Company Number: US-BAYER-2011-042551

PATIENT
  Age: 79 Year
  Sex: Female
  Weight: 73 kg

DRUGS (1)
  1. ALEVE (CAPLET) [Suspect]
     Indication: ARTHRITIS
     Dosage: BOTTLE COUNT 150S. CONSUMER TAKES ONE EVERY SIX TO EIGHT HOURS UP TO 3 A DAY.
     Route: 048
     Dates: start: 20110511

REACTIONS (1)
  - ARTHRALGIA [None]
